FAERS Safety Report 11234955 (Version 1)
Quarter: 2015Q3

REPORT INFORMATION
  Report Type: Spontaneous
  Country: JP (occurrence: JP)
  Receive Date: 20150702
  Receipt Date: 20150702
  Transmission Date: 20151125
  Serious: Yes (Hospitalization)
  Sender: FDA-Public Use
  Company Number: JP-BAYER-2015-365087

PATIENT
  Sex: Male

DRUGS (4)
  1. WARFARIN [Interacting]
     Active Substance: WARFARIN
     Indication: LACUNAR INFARCTION
  2. BAYASPIRIN [Interacting]
     Active Substance: ASPIRIN
     Indication: LACUNAR INFARCTION
  3. WARFARIN [Interacting]
     Active Substance: WARFARIN
     Indication: PERIPHERAL ARTERIAL OCCLUSIVE DISEASE
     Dosage: UNK
     Route: 048
  4. BAYASPIRIN [Suspect]
     Active Substance: ASPIRIN
     Indication: PERIPHERAL ARTERIAL OCCLUSIVE DISEASE
     Dosage: UNK
     Route: 048

REACTIONS (4)
  - Diverticulum intestinal haemorrhagic [None]
  - Abdominal pain [None]
  - Haematochezia [None]
  - Labelled drug-drug interaction medication error [None]

NARRATIVE: CASE EVENT DATE: 201412
